FAERS Safety Report 24685178 (Version 1)
Quarter: 2024Q4

REPORT INFORMATION
  Report Type: Spontaneous
  Country: CZ (occurrence: CZ)
  Receive Date: 20241202
  Receipt Date: 20241202
  Transmission Date: 20250115
  Serious: Yes (Hospitalization)
  Sender: AAVIS PHARMACEUTICALS
  Company Number: CZ-AVS-000027

PATIENT
  Age: 10 Year
  Sex: Female

DRUGS (2)
  1. KETOCONAZOLE [Suspect]
     Active Substance: KETOCONAZOLE
     Indication: Ectopic ACTH syndrome
     Route: 048
  2. KETOCONAZOLE [Suspect]
     Active Substance: KETOCONAZOLE
     Indication: Ectopic ACTH syndrome
     Dosage: SIX WEEKS AFTER
     Route: 048

REACTIONS (2)
  - COVID-19 [Recovering/Resolving]
  - Product use in unapproved indication [Unknown]
